FAERS Safety Report 10349535 (Version 2)
Quarter: 2014Q3

REPORT INFORMATION
  Report Type: Spontaneous
  Country: GB (occurrence: GB)
  Receive Date: 20140730
  Receipt Date: 20140731
  Transmission Date: 20150326
  Serious: Yes (Hospitalization, Other)
  Sender: FDA-Public Use
  Company Number: GB-RANBAXY-2014RR-83822

PATIENT

DRUGS (6)
  1. PREDNISOLONE. [Suspect]
     Active Substance: PREDNISOLONE
     Indication: LOWER RESPIRATORY TRACT INFECTION
     Dosage: 30 MILLIGRAM DAILY; REDUCED DOWN TO 30 MG FOR 5/6 DAYS FOR A FEW YEARS
     Route: 065
  2. FLIXOTIDE [Concomitant]
     Active Substance: FLUTICASONE PROPIONATE
     Indication: PRODUCT USED FOR UNKNOWN INDICATION
     Dosage: UNK
     Route: 055
  3. TRAMADOL [Suspect]
     Active Substance: TRAMADOL
     Indication: BACK PAIN
     Dosage: 150 MILLIGRAM DAILY, TOOK TRAMADOL FOR 2-3 MONTHS IN TOTAL
     Route: 065
  4. PARACETAMOL [Concomitant]
     Active Substance: ACETAMINOPHEN
     Indication: PRODUCT USED FOR UNKNOWN INDICATION
     Dosage: UNK
     Route: 065
  5. PREDNISOLONE. [Suspect]
     Active Substance: PREDNISOLONE
     Indication: LOWER RESPIRATORY TRACT INFECTION
     Dosage: 40 MILLIGRAM DAILY, TOOK FOR 5 DAYS
     Route: 065
  6. CO-AMOXICLAV [Suspect]
     Active Substance: AMOXICILLIN\CLAVULANIC ACID
     Indication: PRODUCT USED FOR UNKNOWN INDICATION
     Dosage: UNK
     Route: 065
     Dates: start: 2010

REACTIONS (11)
  - Back pain [Unknown]
  - Drug ineffective [Unknown]
  - Asthma [Unknown]
  - Anaphylactic shock [Unknown]
  - Lower respiratory tract infection [Unknown]
  - Condition aggravated [Unknown]
  - Pulmonary thrombosis [Unknown]
  - Spinal cord disorder [Unknown]
  - Pain [Unknown]
  - Chest pain [Unknown]
  - Hypoaesthesia [Unknown]

NARRATIVE: CASE EVENT DATE: 2010
